FAERS Safety Report 6851514-6 (Version None)
Quarter: 2010Q3

REPORT INFORMATION
  Report Type: 
  Country: None (occurrence: None)
  Receive Date: 20100717
  Receipt Date: 20080116
  Transmission Date: 20110219
  Serious: No
  Sender: FDA-Public Use
  Company Number: US-PFIZER INC-2008006936

PATIENT
  Sex: Female
  Weight: 69.1 kg

DRUGS (7)
  1. CHANTIX [Suspect]
     Indication: SMOKING CESSATION THERAPY
     Dates: start: 20080101
  2. SYNTHROID [Concomitant]
  3. PREMARIN [Concomitant]
  4. NEXIUM [Concomitant]
  5. POTASSIUM CHLORIDE [Concomitant]
  6. PAXIL [Concomitant]
  7. NADOLOL [Concomitant]

REACTIONS (5)
  - BLOOD TRIGLYCERIDES INCREASED [None]
  - HEADACHE [None]
  - MUSCLE SPASMS [None]
  - NAUSEA [None]
  - NIGHTMARE [None]
